FAERS Safety Report 5657902-8 (Version None)
Quarter: 2008Q1

REPORT INFORMATION
  Report Type: 
  Country: None (occurrence: None)
  Receive Date: 20080310
  Receipt Date: 20080227
  Transmission Date: 20080703
  Serious: Yes (Other)
  Sender: FDA-Public Use
  Company Number: PHHY2008JP02296

PATIENT
  Age: 51 Year
  Sex: Male

DRUGS (3)
  1. CYCLOSPORINE [Suspect]
     Indication: BONE MARROW TRANSPLANT
  2. METHOTREXATE [Suspect]
     Indication: BONE MARROW TRANSPLANT
  3. CELLCEPT [Concomitant]
     Indication: BONE MARROW TRANSPLANT
     Route: 048

REACTIONS (5)
  - CRYPTOGENIC ORGANISING PNEUMONIA [None]
  - GRAFT VERSUS HOST DISEASE [None]
  - MYOKYMIA [None]
  - NEPHRITIS INTERSTITIAL [None]
  - SEPSIS [None]
